FAERS Safety Report 7845833-4 (Version None)
Quarter: 2011Q4

REPORT INFORMATION
  Report Type: 
  Country: None (occurrence: None)
  Receive Date: 20111025
  Receipt Date: 20111012
  Transmission Date: 20120403
  Serious: Yes (Hospitalization)
  Sender: FDA-Public Use
  Company Number: FR-MYLANLABS-2011S1021675

PATIENT
  Age: 64 Year
  Sex: Female

DRUGS (3)
  1. ROPINIROLE [Interacting]
     Dosage: 8 MG/DAY
     Route: 065
  2. ROPINIROLE [Suspect]
     Indication: PARKINSON'S DISEASE
     Dosage: 6 MG/DAY
     Route: 065
  3. FLUINDIONE [Interacting]
     Indication: THROMBOPHLEBITIS
     Route: 048

REACTIONS (2)
  - HAEMORRHAGE INTRACRANIAL [None]
  - DRUG INTERACTION [None]
